FAERS Safety Report 22362302 (Version 1)
Quarter: 2023Q2

REPORT INFORMATION
  Report Type: Spontaneous
  Country: US (occurrence: US)
  Receive Date: 20230524
  Receipt Date: 20230524
  Transmission Date: 20230721
  Serious: Yes (Death, Other)
  Sender: FDA-Public Use
  Company Number: US-PFIZER INC-202300198936

PATIENT
  Age: 79 Year
  Sex: Male

DRUGS (1)
  1. VYNDAMAX [Suspect]
     Active Substance: TAFAMIDIS
     Indication: Amyloidosis
     Dosage: 61MG CAPSULE, ONE CAPSULE A DAY
     Dates: start: 2022

REACTIONS (2)
  - Cardiac failure congestive [Fatal]
  - Off label use [Unknown]

NARRATIVE: CASE EVENT DATE: 20220101
